FAERS Safety Report 4867686-9 (Version None)
Quarter: 2005Q4

REPORT INFORMATION
  Report Type: 
  Country: None (occurrence: None)
  Receive Date: 20051222
  Receipt Date: 20020413
  Transmission Date: 20060501
  Serious: Yes (Death, Hospitalization)
  Sender: FDA-Public Use
  Company Number: 8-98194-002G

PATIENT
  Age: 67 Year
  Sex: Male

DRUGS (5)
  1. MYLOTARG [Suspect]
     Indication: ACUTE MYELOID LEUKAEMIA
     Dosage: 9 MG.SQ.M, INTRAVENOUS
     Route: 042
     Dates: start: 19980518, end: 19980608
  2. K-DUR (POTASSIUM CHLORID) (K-DUR (POTASSIUM CHLOIRDE)) [Concomitant]
  3. SPORANOX (ITRACONAZOLE) (SPORANOX (ITRACONAZOLE)) [Concomitant]
  4. NEUPOGEN  (FILGRASTIM (NEUPOGEN (FILGRASTIM)) [Concomitant]
  5. MAGNESIUM OXIDE (MAGNESIUM OXIDE) [Concomitant]

REACTIONS (17)
  - ASPERGILLOSIS [None]
  - BACTERAEMIA [None]
  - BLOOD IRON INCREASED [None]
  - BONE MARROW FAILURE [None]
  - CLOSTRIDIAL INFECTION [None]
  - COUGH [None]
  - DIARRHOEA [None]
  - EPISTAXIS [None]
  - FATIGUE [None]
  - FEBRILE NEUTROPENIA [None]
  - FUNGAL INFECTION [None]
  - FUSARIUM INFECTION [None]
  - LUNG INFILTRATION [None]
  - MALAISE [None]
  - NASAL CONGESTION [None]
  - NEOPLASM MALIGNANT [None]
  - SEPSIS [None]
